FAERS Safety Report 6295446-3 (Version None)
Quarter: 2009Q3

REPORT INFORMATION
  Report Type: 
  Country: None (occurrence: None)
  Receive Date: 20090803
  Receipt Date: 20090728
  Transmission Date: 20100115
  Serious: Yes (Other)
  Sender: FDA-Public Use
  Company Number: US-BAXTER-2009BH011731

PATIENT
  Age: 7 Month
  Sex: Female
  Weight: 5 kg

DRUGS (1)
  1. FENTANYL CITRATE [Suspect]
     Indication: PAIN
     Route: 042
     Dates: start: 20090101

REACTIONS (5)
  - AGITATION [None]
  - DEVICE MALFUNCTION [None]
  - HEART RATE INCREASED [None]
  - UNDERDOSE [None]
  - VOMITING [None]
